FAERS Safety Report 15376145 (Version 1)
Quarter: 2018Q3

REPORT INFORMATION
  Report Type: Report from Study
  Country: US (occurrence: US)
  Receive Date: 20180912
  Receipt Date: 20180912
  Transmission Date: 20181010
  Serious: Yes (Hospitalization)
  Sender: FDA-Public Use
  Company Number: US-EXELIXIS-CABO-18015827

PATIENT
  Sex: Male

DRUGS (1)
  1. CABOMETYX [Suspect]
     Active Substance: CABOZANTINIB S-MALATE
     Indication: RENAL CANCER
     Dosage: 60 MG, QD
     Route: 048
     Dates: start: 20171208, end: 20180807

REACTIONS (6)
  - Renal injury [Unknown]
  - Weight decreased [Unknown]
  - Malignant neoplasm progression [Unknown]
  - Dehydration [Unknown]
  - Decreased appetite [Unknown]
  - Anaemia [Unknown]
